FAERS Safety Report 23146409 (Version 1)
Quarter: 2023Q4

REPORT INFORMATION
  Report Type: Spontaneous
  Country: US (occurrence: US)
  Receive Date: 20231104
  Receipt Date: 20231104
  Transmission Date: 20240109
  Serious: No
  Sender: FDA-Public Use
  Company Number: US-GLENMARK PHARMACEUTICALS-2023GMK085471

PATIENT

DRUGS (1)
  1. RYALTRIS [Suspect]
     Active Substance: MOMETASONE FUROATE MONOHYDRATE\OLOPATADINE HYDROCHLORIDE
     Indication: Product used for unknown indication
     Dosage: BID (2 PUFFS IN EACH NOSTRIL NASALLY TWICE A DAY)
     Route: 045
     Dates: start: 20230515, end: 20230715

REACTIONS (2)
  - Headache [Unknown]
  - Fatigue [Unknown]
